FAERS Safety Report 4724876-3 (Version None)
Quarter: 2005Q3

REPORT INFORMATION
  Report Type: 
  Country: None (occurrence: None)
  Receive Date: 20050720
  Receipt Date: 20050720
  Transmission Date: 20060218
  Serious: Yes (Hospitalization)
  Sender: FDA-Public Use
  Company Number: None

PATIENT
  Age: 52 Year
  Sex: Male

DRUGS (9)
  1. METHYLPREDNISOLONE [Suspect]
     Indication: SARCOIDOSIS
     Dosage: 80MG IVQQ6H
     Route: 042
     Dates: start: 20050416, end: 20050425
  2. HYDRALAZINE [Concomitant]
  3. CALCIUM CARBONATE [Concomitant]
  4. LISINOPRIL [Concomitant]
  5. TEMAZEPAM [Concomitant]
  6. CODEINE [Concomitant]
  7. FELODIPINE [Concomitant]
  8. DOXAZOSIN [Concomitant]
  9. LABETALOL HCL [Concomitant]

REACTIONS (2)
  - BLOOD PRESSURE INADEQUATELY CONTROLLED [None]
  - WEIGHT INCREASED [None]
